FAERS Safety Report 9109591 (Version 2)
Quarter: 2013Q1

REPORT INFORMATION
  Report Type: Spontaneous
  Country: US (occurrence: US)
  Receive Date: 20130222
  Receipt Date: 20130304
  Transmission Date: 20140127
  Serious: Yes (Hospitalization, Other)
  Sender: FDA-Public Use
  Company Number: US-SANOFI-AVENTIS-2013SA014746

PATIENT
  Age: 77 Year
  Sex: Female

DRUGS (4)
  1. LANTUS [Suspect]
     Indication: TYPE 2 DIABETES MELLITUS
     Route: 058
  2. LANTUS SOLOSTAR [Suspect]
     Indication: TYPE 2 DIABETES MELLITUS
     Dosage: DOSE:26 UNIT(S)
     Route: 058
     Dates: start: 2011
  3. SOLOSTAR [Suspect]
     Indication: TYPE 2 DIABETES MELLITUS
     Dates: start: 2011
  4. NOVOLOG [Concomitant]

REACTIONS (7)
  - Coronary artery disease [Unknown]
  - Gait disturbance [Unknown]
  - Dysphagia [Unknown]
  - Medical device complication [Unknown]
  - Infection [Unknown]
  - Cataract operation [Unknown]
  - General physical health deterioration [Unknown]
